FAERS Safety Report 4622285-9 (Version None)
Quarter: 2005Q1

REPORT INFORMATION
  Report Type: 
  Country: None (occurrence: None)
  Receive Date: 20050324
  Receipt Date: 20050324
  Transmission Date: 20050727
  Serious: No
  Sender: FDA-Public Use
  Company Number: None

PATIENT
  Sex: Female
  Weight: 100 kg

DRUGS (5)
  1. COREG [Suspect]
     Dosage: 12.5MG BID PO
     Route: 048
     Dates: start: 20041228, end: 20041231
  2. LIPITOR [Concomitant]
  3. ASPIRIN [Concomitant]
  4. LOTENSIN [Concomitant]
  5. PERCOCET [Concomitant]

REACTIONS (2)
  - BRADYCARDIA [None]
  - OXYGEN SATURATION DECREASED [None]
